FAERS Safety Report 15241106 (Version 1)
Quarter: 2018Q3

REPORT INFORMATION
  Report Type: Spontaneous
  Country: US (occurrence: US)
  Receive Date: 20180711
  Receipt Date: 20180711
  Transmission Date: 20181010
  Serious: Yes (Hospitalization)
  Sender: FDA-Public Use
  Company Number: None

PATIENT
  Age: 32 Year
  Sex: Male
  Weight: 74.4 kg

DRUGS (2)
  1. BIKTARVY [Suspect]
     Active Substance: BICTEGRAVIR SODIUM\EMTRICITABINE\TENOFOVIR ALAFENAMIDE FUMARATE
     Indication: HIV INFECTION
     Route: 048
     Dates: start: 20180625, end: 20180704
  2. ACETAMINOPHEN 1G PO BID [Concomitant]
     Dates: start: 20180627, end: 20180704

REACTIONS (6)
  - Nausea [None]
  - Ocular icterus [None]
  - Abdominal tenderness [None]
  - Gallbladder enlargement [None]
  - Vomiting [None]
  - Jaundice [None]

NARRATIVE: CASE EVENT DATE: 20180706
